FAERS Safety Report 17732828 (Version 1)
Quarter: 2020Q2

REPORT INFORMATION
  Report Type: Spontaneous
  Country: US (occurrence: US)
  Receive Date: 20200430
  Receipt Date: 20200430
  Transmission Date: 20200714
  Serious: Yes (Hospitalization)
  Sender: FDA-Public Use
  Company Number: None

PATIENT
  Age: 53 Year
  Sex: Male
  Weight: 92.99 kg

DRUGS (1)
  1. ATENOLOL/CHLORTHALIDONE(ATENOLOL 50MG/CHLORTHALIDONE 25MG TAB [Suspect]
     Active Substance: ATENOLOL\CHLORTHALIDONE
     Indication: HYPERTENSION
     Route: 048
     Dates: start: 20190619, end: 20191005

REACTIONS (5)
  - Orthopnoea [None]
  - Dyspnoea [None]
  - Hyponatraemia [None]
  - Polydipsia [None]
  - Coma [None]

NARRATIVE: CASE EVENT DATE: 20191005
